FAERS Safety Report 11549038 (Version 2)
Quarter: 2015Q3

REPORT INFORMATION
  Report Type: Spontaneous
  Country: US (occurrence: US)
  Receive Date: 20150903
  Receipt Date: 20150916
  Transmission Date: 20151125
  Serious: No
  Sender: FDA-Public Use
  Company Number: US-ELI_LILLY_AND_COMPANY-US201212005729

PATIENT
  Age: 77 Year
  Sex: Male

DRUGS (2)
  1. HUMALOG MIX75/25 [Suspect]
     Active Substance: INSULIN LISPRO
     Indication: TYPE 2 DIABETES MELLITUS
     Dosage: UNK, PRN
  2. HUMALOG MIX75/25 [Suspect]
     Active Substance: INSULIN LISPRO

REACTIONS (6)
  - Injection site haemorrhage [Unknown]
  - Drug ineffective [Unknown]
  - Carpal tunnel syndrome [Unknown]
  - Blood glucose increased [Not Recovered/Not Resolved]
  - Tremor [Unknown]
  - Hypoacusis [Unknown]

NARRATIVE: CASE EVENT DATE: 20121214
